FAERS Safety Report 23911621 (Version 1)
Quarter: 2024Q2

REPORT INFORMATION
  Report Type: Spontaneous
  Country: US (occurrence: US)
  Receive Date: 20240528
  Receipt Date: 20240528
  Transmission Date: 20240716
  Serious: No
  Sender: FDA-Public Use
  Company Number: US-SANOFI-02056941

PATIENT
  Sex: Male

DRUGS (1)
  1. DUPIXENT [Suspect]
     Active Substance: DUPILUMAB
     Indication: Yaws
     Dosage: UNK UNK, 1X

REACTIONS (3)
  - Rash [Unknown]
  - Pruritus [Unknown]
  - Product use in unapproved indication [Unknown]
